FAERS Safety Report 7322273-8 (Version None)
Quarter: 2011Q1

REPORT INFORMATION
  Report Type: 
  Country: None (occurrence: None)
  Receive Date: 20110301
  Receipt Date: 20110221
  Transmission Date: 20110831
  Serious: Yes (Hospitalization)
  Sender: FDA-Public Use
  Company Number: US-BIOGENIDEC-2011BI004075

PATIENT
  Age: 50 Year
  Sex: Male

DRUGS (5)
  1. NUVIGIL [Concomitant]
     Indication: FATIGUE
  2. ZOLPIDEM [Concomitant]
     Indication: INSOMNIA
  3. CITALOPRAM HYDROBROMIDE [Concomitant]
     Indication: DEPRESSION
  4. TYSABRI [Suspect]
     Indication: MULTIPLE SCLEROSIS
     Route: 042
     Dates: start: 20071116
  5. VIAGRA [Concomitant]
     Indication: ERECTILE DYSFUNCTION

REACTIONS (1)
  - CHEST PAIN [None]
